FAERS Safety Report 24046177 (Version 2)
Quarter: 2024Q3

REPORT INFORMATION
  Report Type: Report from Study
  Country: CA (occurrence: CA)
  Receive Date: 20240703
  Receipt Date: 20240712
  Transmission Date: 20241017
  Serious: Yes (Hospitalization)
  Sender: ROCHE
  Company Number: ROCHE-10000012983

PATIENT
  Age: 30 Year
  Sex: Female

DRUGS (7)
  1. ACTEMRA [Suspect]
     Active Substance: TOCILIZUMAB
     Indication: Rheumatoid arthritis
     Dosage: DRUG DOSE FIRST ADMINISTERED IS 480 MG MILLIGRAM(S)
     Route: 042
     Dates: start: 20150128, end: 20150522
  2. ACTEMRA [Suspect]
     Active Substance: TOCILIZUMAB
     Dosage: DRUG DOSE FIRST ADMINISTERED IS 400 MG MILLIGRAM(S)
     Route: 042
     Dates: start: 20150715, end: 20170915
  3. ACTEMRA [Suspect]
     Active Substance: TOCILIZUMAB
     Dosage: DRUG DOSE FIRST ADMINISTERED IS 480 MG MILLIGRAM(S)?MOREDOSAGEINFO IS B4027B05 28-FEB-2025
     Route: 042
     Dates: start: 20171018
  4. ACTEMRA [Suspect]
     Active Substance: TOCILIZUMAB
     Route: 042
  5. FOLIC ACID [Concomitant]
     Active Substance: FOLIC ACID
  6. METHOTREXATE [Concomitant]
     Active Substance: METHOTREXATE
  7. MIN-OVRAL [Concomitant]

REACTIONS (4)
  - Infection [Not Recovered/Not Resolved]
  - Ill-defined disorder [Unknown]
  - Osteitis [Unknown]
  - Inflammation [Unknown]

NARRATIVE: CASE EVENT DATE: 20240615
